APPROVED DRUG PRODUCT: ERLOTINIB HYDROCHLORIDE
Active Ingredient: ERLOTINIB HYDROCHLORIDE
Strength: EQ 100MG BASE
Dosage Form/Route: TABLET;ORAL
Application: A211960 | Product #002 | TE Code: AB
Applicant: SHILPA MEDICARE LTD
Approved: Nov 5, 2019 | RLD: No | RS: No | Type: RX